FAERS Safety Report 6625705-3 (Version None)
Quarter: 2010Q1

REPORT INFORMATION
  Report Type: 
  Country: None (occurrence: None)
  Receive Date: 20100310
  Receipt Date: 20100303
  Transmission Date: 20100710
  Serious: Yes (Other)
  Sender: FDA-Public Use
  Company Number: CA-SANOFI-AVENTIS-2010SA006984

PATIENT
  Age: 64 Year
  Sex: Male

DRUGS (2)
  1. DRONEDARONE HCL [Suspect]
     Indication: DRUG USE FOR UNKNOWN INDICATION
     Route: 048
  2. CIPROFLOXACIN [Suspect]
     Indication: URINARY TRACT INFECTION
     Route: 065
     Dates: start: 20100201

REACTIONS (1)
  - TORSADE DE POINTES [None]
